FAERS Safety Report 7457835-0 (Version None)
Quarter: 2011Q2

REPORT INFORMATION
  Report Type: 
  Country: None (occurrence: None)
  Receive Date: 20110504
  Receipt Date: 20110421
  Transmission Date: 20111010
  Serious: Yes (Hospitalization, Other)
  Sender: FDA-Public Use
  Company Number: PHHY2011FR34551

PATIENT
  Sex: Female

DRUGS (7)
  1. FLECAINE [Suspect]
     Indication: ARRHYTHMIA
     Dosage: 100 MG, QD
     Route: 048
     Dates: end: 20101207
  2. PREVISCAN [Suspect]
     Dosage: 10 MG, QD
     Route: 048
     Dates: end: 20101207
  3. TAREG [Suspect]
     Indication: HYPERTENSION
     Dosage: 80 MG, QD
     Route: 048
     Dates: end: 20101207
  4. FUROSEMIDE [Suspect]
     Indication: HYPERTENSION
     Dosage: 40 MG, QD
     Route: 048
     Dates: end: 20101207
  5. FLECAINE [Suspect]
     Dosage: 100 MG, UNK
     Dates: start: 20101212
  6. PREVISCAN [Suspect]
     Dosage: 15 MG, QD
     Route: 048
     Dates: start: 20101212
  7. TAREG [Suspect]
     Dosage: 80 MG, UNK
     Route: 048
     Dates: start: 20101212

REACTIONS (6)
  - MELAENA [None]
  - BLOOD CREATININE INCREASED [None]
  - THROMBOSIS [None]
  - GASTRODUODENAL ULCER [None]
  - HAEMATEMESIS [None]
  - SYNCOPE [None]
